FAERS Safety Report 8695576 (Version 3)
Quarter: 2012Q4

REPORT INFORMATION
  Report Type: 
  Country: US (occurrence: US)
  Receive Date: 20120731
  Receipt Date: 20120925
  Transmission Date: 20130627
  Serious: Yes (Hospitalization, Other)
  Sender: FDA-Public Use
  Company Number: US-PFIZER INC-2012171096

PATIENT
  Age: 67 Year
  Sex: Male
  Weight: 97.5 kg

DRUGS (10)
  1. UNSPECIFIED INGREDIENT [Suspect]
     Indication: METASTATIC RENAL CELL CARCINOMA
     Dosage: 1479 mg, weekly
     Route: 042
     Dates: start: 20120706, end: 20120712
  2. AXITINIB [Suspect]
     Indication: METASTATIC RENAL CELL CARCINOMA
     Dosage: 5 mg, 2x/day
     Route: 048
     Dates: start: 20120706, end: 20120713
  3. METFORMIN HYDROCHLORIDE [Concomitant]
     Indication: DIABETES MELLITUS
     Dosage: 500 mg, 1x/day
     Route: 048
  4. GLIMEPIRIDE [Concomitant]
     Indication: DIABETES MELLITUS
     Dosage: 1 mg, 2x/day
     Route: 048
     Dates: start: 20110131
  5. CITALOPRAM [Concomitant]
     Indication: DEPRESSION
     Dosage: 20 mg, 1x/day
     Route: 048
     Dates: start: 20120116
  6. GABAPENTIN [Concomitant]
     Indication: NEUROPATHY PERIPHERAL
     Dosage: 300 mg, 2x/day
     Route: 048
     Dates: start: 20110726
  7. LASIX [Concomitant]
     Indication: OEDEMA
     Dosage: 20 mg, as needed
     Route: 048
     Dates: start: 20120706
  8. METOPROLOL [Concomitant]
     Indication: HYPERTENSION
     Dosage: 50 mg, 2x/day
     Route: 048
  9. COLACE [Concomitant]
     Indication: CONSTIPATION
     Dosage: 100 mg, as needed
     Route: 048
  10. PROCHLORPERAZINE [Concomitant]
     Indication: NAUSEA
     Dosage: 10 mg, as needed
     Route: 048
     Dates: start: 20110223

REACTIONS (2)
  - Pulmonary embolism [Recovered/Resolved]
  - Pericardial effusion [Recovered/Resolved]
